FAERS Safety Report 13345313 (Version 1)
Quarter: 2017Q1

REPORT INFORMATION
  Report Type: Spontaneous
  Country: US (occurrence: US)
  Receive Date: 20170317
  Receipt Date: 20170317
  Transmission Date: 20170428
  Serious: No
  Sender: FDA-Public Use
  Company Number: US-BAYER-2017-043690

PATIENT
  Age: 72 Year
  Sex: Female
  Weight: 60 kg

DRUGS (3)
  1. LEVOTHYROXINE. [Concomitant]
     Active Substance: LEVOTHYROXINE
  2. BAYER LOW DOSE [Concomitant]
     Active Substance: ASPIRIN
  3. ALEVE PM [Suspect]
     Active Substance: DIPHENHYDRAMINE HYDROCHLORIDE\NAPROXEN SODIUM
     Indication: PAIN
     Dosage: UNK
     Route: 048
     Dates: start: 20170228, end: 20170303

REACTIONS (4)
  - Underdose [None]
  - Hyperhidrosis [Recovered/Resolved]
  - Insomnia [None]
  - Discomfort [Recovered/Resolved]

NARRATIVE: CASE EVENT DATE: 20170228
